FAERS Safety Report 23567555 (Version 2)
Quarter: 2024Q1

REPORT INFORMATION
  Report Type: Other
  Country: CA (occurrence: CA)
  Receive Date: 20240226
  Receipt Date: 20240326
  Transmission Date: 20240410
  Serious: Yes (Disabling, Other)
  Sender: FDA-Public Use
  Company Number: CA-DUCHESNAY-2024CA000080

PATIENT

DRUGS (1)
  1. DOXYLAMINE SUCCINATE\PYRIDOXINE HYDROCHLORIDE [Suspect]
     Active Substance: DOXYLAMINE SUCCINATE\PYRIDOXINE HYDROCHLORIDE
     Indication: Morning sickness
     Dosage: 20.0 MILLIGRAM 1 EVERY 1 DAY
     Route: 048
     Dates: start: 2023, end: 2023

REACTIONS (7)
  - Depressed mood [Recovered/Resolved]
  - Panic attack [Recovered/Resolved]
  - Thinking abnormal [Recovered/Resolved]
  - Feeling of despair [Recovered/Resolved]
  - Anger [Recovered/Resolved]
  - Crying [Recovered/Resolved]
  - Confusional state [Recovered/Resolved]

NARRATIVE: CASE EVENT DATE: 20230101
